FAERS Safety Report 7131200-8 (Version None)
Quarter: 2010Q4

REPORT INFORMATION
  Report Type: 
  Country: None (occurrence: None)
  Receive Date: 20101201
  Receipt Date: 20101122
  Transmission Date: 20110411
  Serious: Yes (Hospitalization)
  Sender: FDA-Public Use
  Company Number: US-NOVOPROD-307961

PATIENT
  Age: 69 Year
  Sex: Female
  Weight: 87.528 kg

DRUGS (14)
  1. VICTOZA [Suspect]
     Indication: TYPE 2 DIABETES MELLITUS
     Dosage: 0.6 MG, QD
     Route: 058
  2. PRANDIN [Concomitant]
     Dosage: 2 MG, TID
     Route: 048
  3. JANUVIA [Concomitant]
     Dosage: 100 MG, QD
     Route: 048
     Dates: end: 20100325
  4. ASPIRIN [Concomitant]
     Dosage: 325 MG, QD
     Route: 048
  5. BENADRYL [Concomitant]
     Dosage: 25 MG, BID
     Route: 048
  6. AMITRIPTYLINE [Concomitant]
     Dosage: 50MG, QHS
     Route: 048
  7. DARVOCET-N 100 [Concomitant]
     Dosage: PRN
     Route: 048
  8. DIOVAN [Concomitant]
     Dosage: 160 MG QAM + 80 MG QPM
     Route: 048
  9. ZOCOR [Concomitant]
     Dosage: 40 MG, QD
     Route: 048
  10. NIASPAN [Concomitant]
     Dosage: 500 MG, 3 PO QHS
     Route: 048
  11. HYDROCHLOROTHIAZIDE [Concomitant]
     Dosage: 25 MG, QD
     Route: 048
  12. SYNTHROID [Concomitant]
     Dosage: 0.088 MG, QD
     Route: 048
  13. PRILOSEC [Concomitant]
     Dosage: 10 MG, QD
     Route: 048
  14. FISH OIL [Concomitant]
     Dosage: 1200 MG, QD
     Route: 048

REACTIONS (1)
  - PULMONARY EMBOLISM [None]
